FAERS Safety Report 5032975-4 (Version None)
Quarter: 2006Q2

REPORT INFORMATION
  Report Type: 
  Country: None (occurrence: None)
  Receive Date: 20060428
  Receipt Date: 20051020
  Transmission Date: 20061013
  Serious: Yes (Hospitalization)
  Sender: FDA-Public Use
  Company Number: 200511481BBE

PATIENT
  Age: 35 Year
  Sex: Male
  Weight: 105 kg

DRUGS (4)
  1. GAMUNEX [Suspect]
     Indication: RENAL TRANSPLANT
     Dosage: 140 G, TOTAL DAILY, INTRAVENOUS
     Route: 042
     Dates: start: 20050601
  2. LOTENSIN [Concomitant]
  3. LABATOLOL [Concomitant]
  4. PROVENTIL [Concomitant]

REACTIONS (5)
  - ANAEMIA [None]
  - ASTHENIA [None]
  - DYSPNOEA [None]
  - FATIGUE [None]
  - HAEMOLYSIS [None]
